FAERS Safety Report 15255588 (Version 1)
Quarter: 2018Q3

REPORT INFORMATION
  Report Type: Spontaneous
  Country: US (occurrence: US)
  Receive Date: 20180717
  Receipt Date: 20180717
  Transmission Date: 20181010
  Serious: Yes (Life-Threatening, Other)
  Sender: FDA-Public Use
  Company Number: None

PATIENT
  Age: 29 Year
  Sex: Male

DRUGS (2)
  1. CLONAZEPAM 1 MG [Concomitant]
     Active Substance: CLONAZEPAM
     Dates: start: 20180219, end: 20180717
  2. DEXTROAMPHETAMINE/AMPHETAMINE [Suspect]
     Active Substance: AMPHETAMINE\DEXTROAMPHETAMINE
     Indication: ATTENTION DEFICIT/HYPERACTIVITY DISORDER
     Route: 048
     Dates: start: 20180622, end: 20180717

REACTIONS (7)
  - Suicidal ideation [None]
  - Mood altered [None]
  - Impaired work ability [None]
  - Product substitution issue [None]
  - Confusional state [None]
  - Feeling abnormal [None]
  - Depressed level of consciousness [None]

NARRATIVE: CASE EVENT DATE: 20180717
